FAERS Safety Report 9268016 (Version 1)
Quarter: 2013Q2

REPORT INFORMATION
  Report Type: Spontaneous
  Country: US (occurrence: US)
  Receive Date: 20130502
  Receipt Date: 20130502
  Transmission Date: 20140414
  Serious: No
  Sender: FDA-Public Use
  Company Number: US-ALEXION-A201201496

PATIENT
  Age: 8 Year
  Sex: Male
  Weight: 28 kg

DRUGS (5)
  1. SOLIRIS 300MG [Suspect]
     Indication: HAEMOLYTIC URAEMIC SYNDROME
     Dosage: 600 MG, UNK (INITIAL)
     Route: 042
     Dates: start: 20120620, end: 20120707
  2. SOLIRIS 300MG [Suspect]
     Dosage: UNK (MAINTENANCE)
     Route: 042
     Dates: start: 20120720
  3. LOSARTAN [Concomitant]
     Dosage: 75 MG, QD
     Dates: start: 201005
  4. SPIRONOLACTONE [Concomitant]
     Dosage: 25 MG, QD
     Dates: start: 201005
  5. ALBUTEROL [Concomitant]
     Dosage: UNK
     Dates: start: 201106

REACTIONS (1)
  - Cough [Recovered/Resolved]
